FAERS Safety Report 25945640 (Version 6)
Quarter: 2025Q4

REPORT INFORMATION
  Report Type: Spontaneous
  Country: US (occurrence: US)
  Receive Date: 20251021
  Receipt Date: 20251215
  Transmission Date: 20260117
  Serious: No
  Sender: PFIZER
  Company Number: US-PFIZER INC-202500204146

PATIENT
  Age: 63 Year
  Sex: Female
  Weight: 51.26 kg

DRUGS (1)
  1. ZAVZPRET [Suspect]
     Active Substance: ZAVEGEPANT HYDROCHLORIDE
     Indication: Migraine
     Dosage: 10 MG, AS NEEDED
     Route: 045

REACTIONS (3)
  - Device defective [Unknown]
  - Throat irritation [Unknown]
  - Dysphonia [Unknown]
